FAERS Safety Report 10667712 (Version 2)
Quarter: 2015Q1

REPORT INFORMATION
  Report Type: Spontaneous
  Country: IT (occurrence: IT)
  Receive Date: 20141222
  Receipt Date: 20150302
  Transmission Date: 20150720
  Serious: Yes (Hospitalization)
  Sender: FDA-Public Use
  Company Number: IT-SA-2014SA175076

PATIENT
  Age: 52 Year
  Sex: Female

DRUGS (2)
  1. PLAVIX [Suspect]
     Active Substance: CLOPIDOGREL BISULFATE
     Route: 048
     Dates: start: 20141216, end: 20141216
  2. DEPAKENE [Suspect]
     Active Substance: VALPROIC ACID
     Dosage: DOSE:10 UNIT(S)
     Route: 048
     Dates: start: 20141216, end: 20141216

REACTIONS (2)
  - Slow speech [Recovered/Resolved]
  - Drug abuse [Recovered/Resolved]

NARRATIVE: CASE EVENT DATE: 20141217
